FAERS Safety Report 10920435 (Version 8)
Quarter: 2016Q1

REPORT INFORMATION
  Report Type: Report from Study
  Country: DE (occurrence: DE)
  Receive Date: 20150317
  Receipt Date: 20160209
  Transmission Date: 20160525
  Serious: Yes (Hospitalization, Other)
  Sender: FDA-Public Use
  Company Number: DE-ROCHE-1549604

PATIENT
  Age: 58 Year
  Sex: Female
  Weight: 60 kg

DRUGS (20)
  1. VITAMIN B12 [Concomitant]
     Active Substance: CYANOCOBALAMIN
  2. METAMIZOL [Concomitant]
     Active Substance: METAMIZOLE SODIUM
  3. HYDROCHLOROTHIAZIDE. [Concomitant]
     Active Substance: HYDROCHLOROTHIAZIDE
     Indication: HYPERTENSION
     Route: 048
     Dates: start: 20141215
  4. AMLODIPIN [Concomitant]
     Active Substance: AMLODIPINE BESYLATE
  5. PEMETREXED [Suspect]
     Active Substance: PEMETREXED
     Indication: NON-SMALL CELL LUNG CANCER
     Dosage: MOST RECENT DOSE ON: 26/FEB/2015
     Route: 042
     Dates: start: 20141216
  6. NEULASTA [Concomitant]
     Active Substance: PEGFILGRASTIM
     Indication: NON-SMALL CELL LUNG CANCER
     Dosage: 24-72 H POST CHEMOTHERAPY
     Route: 058
     Dates: start: 20141219
  7. NOVALGIN [Concomitant]
     Active Substance: METAMIZOLE SODIUM
     Indication: NON-SMALL CELL LUNG CANCER
     Route: 048
     Dates: start: 20141101
  8. PANTOZOL [Concomitant]
     Active Substance: PANTOPRAZOLE SODIUM
     Route: 048
     Dates: start: 20141101
  9. IBUHEXAL [Concomitant]
     Active Substance: IBUPROFEN
     Route: 048
     Dates: start: 20141201
  10. RAMIPRIL. [Concomitant]
     Active Substance: RAMIPRIL
     Indication: HYPERTENSION
     Route: 048
  11. OXYGESIC [Concomitant]
     Active Substance: OXYCODONE
  12. EMEND [Concomitant]
     Active Substance: APREPITANT
  13. BISOPROLOL [Concomitant]
     Active Substance: BISOPROLOL
  14. XARELTO [Concomitant]
     Active Substance: RIVAROXABAN
  15. BEVACIZUMAB [Suspect]
     Active Substance: BEVACIZUMAB
     Indication: NON-SMALL CELL LUNG CANCER
     Dosage: MOST RECENT DOSE ON: 04/FEB/2015
     Route: 042
     Dates: start: 20141216, end: 20150204
  16. CISPLATIN. [Suspect]
     Active Substance: CISPLATIN
     Indication: NON-SMALL CELL LUNG CANCER
     Dosage: MOST RECENT DOSE ON: 26/FEB/2015
     Route: 042
     Dates: start: 20141216
  17. KEVATRIL [Concomitant]
     Active Substance: GRANISETRON HYDROCHLORIDE
  18. LAFOL [Concomitant]
  19. DEXAMETHASON [Concomitant]
     Active Substance: DEXAMETHASONE
  20. ZOMETA [Concomitant]
     Active Substance: ZOLEDRONIC ACID
     Indication: NON-SMALL CELL LUNG CANCER
     Route: 042
     Dates: start: 20150105

REACTIONS (8)
  - Haematoma [Recovered/Resolved]
  - General physical health deterioration [Recovered/Resolved with Sequelae]
  - Deep vein thrombosis [Not Recovered/Not Resolved]
  - Device related infection [Recovered/Resolved]
  - Epistaxis [Recovering/Resolving]
  - Thrombocytopenia [Not Recovered/Not Resolved]
  - Dyspnoea exertional [Recovered/Resolved]
  - Weight decreased [Recovered/Resolved]

NARRATIVE: CASE EVENT DATE: 20141216
